FAERS Safety Report 10182264 (Version 1)
Quarter: 2014Q2

REPORT INFORMATION
  Report Type: Spontaneous
  Country: US (occurrence: US)
  Receive Date: 20140520
  Receipt Date: 20140520
  Transmission Date: 20141212
  Serious: Yes (Hospitalization, Other)
  Sender: FDA-Public Use
  Company Number: US-PAR PHARMACEUTICAL, INC-2014SCPR009054

PATIENT
  Sex: 0

DRUGS (5)
  1. FLUOXETINE [Suspect]
     Indication: PRODUCT USED FOR UNKNOWN INDICATION
     Dosage: UNK, UNKNOWN
     Route: 048
  2. QUETIAPINE [Suspect]
     Indication: PRODUCT USED FOR UNKNOWN INDICATION
     Dosage: 18 G, UNKNOWN, EXTENDED RELEASE
     Route: 048
  3. CARBAMAZEPINE [Suspect]
     Indication: PRODUCT USED FOR UNKNOWN INDICATION
     Dosage: 10 G, UNKNOWN, CONTROLLED RELEASE
     Route: 048
  4. SODIUM VALPROATE [Suspect]
     Indication: PRODUCT USED FOR UNKNOWN INDICATION
     Dosage: 35 G, UNKNOWN
     Route: 048
  5. OXAZEPAM [Suspect]
     Indication: PRODUCT USED FOR UNKNOWN INDICATION
     Dosage: 375 MG, UNKNOWN
     Route: 048

REACTIONS (3)
  - Toxicity to various agents [Recovered/Resolved]
  - Distributive shock [Recovered/Resolved]
  - Pneumonia aspiration [Recovered/Resolved]
